FAERS Safety Report 6547535-3 (Version None)
Quarter: 2010Q1

REPORT INFORMATION
  Report Type: 
  Country: None (occurrence: None)
  Receive Date: 20100122
  Receipt Date: 20100118
  Transmission Date: 20100710
  Serious: Yes (Hospitalization)
  Sender: FDA-Public Use
  Company Number: BR-ABBOTT-09P-020-0605987-00

PATIENT
  Sex: Male
  Weight: 64 kg

DRUGS (8)
  1. HUMIRA [Suspect]
     Indication: RHEUMATOID ARTHRITIS
     Route: 058
  2. PREDNISONE [Concomitant]
     Indication: RHEUMATOID ARTHRITIS
     Route: 048
     Dates: start: 20010101
  3. METHOTREXATE [Concomitant]
     Indication: RHEUMATOID ARTHRITIS
     Route: 048
     Dates: start: 20050101
  4. METHOTREXATE [Concomitant]
  5. FOLIC ACID [Concomitant]
     Indication: RHEUMATOID ARTHRITIS
     Route: 048
     Dates: start: 20010101
  6. CALCIUM [Concomitant]
     Indication: PROPHYLAXIS
     Route: 048
     Dates: start: 20030101
  7. CALCIUM [Concomitant]
     Indication: BONE EROSION
  8. COLECALCIFEROL/VITAMIN A (ADEROGIL) [Concomitant]
     Indication: RHEUMATOID ARTHRITIS
     Route: 048
     Dates: start: 20030101

REACTIONS (17)
  - ARTHRALGIA [None]
  - ARTHROPATHY [None]
  - BONE DISORDER [None]
  - DEPRESSION [None]
  - FINGER DEFORMITY [None]
  - GAIT DISTURBANCE [None]
  - HYPERKERATOSIS [None]
  - HYPOAESTHESIA [None]
  - JOINT SWELLING [None]
  - MENISCUS LESION [None]
  - MOVEMENT DISORDER [None]
  - MUSCULOSKELETAL PAIN [None]
  - OEDEMA PERIPHERAL [None]
  - OSTEOARTHRITIS [None]
  - OSTEOPENIA [None]
  - PAIN IN EXTREMITY [None]
  - RHEUMATOID ARTHRITIS [None]
